FAERS Safety Report 7297598-5 (Version None)
Quarter: 2011Q1

REPORT INFORMATION
  Report Type: 
  Country: None (occurrence: None)
  Receive Date: 20110216
  Receipt Date: 20110201
  Transmission Date: 20110831
  Serious: Yes (Death, Hospitalization)
  Sender: FDA-Public Use
  Company Number: US-CELGENEUS-163-21880-11020287

PATIENT
  Sex: Male

DRUGS (10)
  1. ASPIRIN [Concomitant]
     Indication: PROPHYLAXIS
     Route: 065
  2. QVAR 40 [Concomitant]
     Route: 065
  3. TERAZOSIN [Concomitant]
     Route: 065
  4. AREDIA [Concomitant]
     Route: 065
  5. VELCADE [Concomitant]
     Indication: MULTIPLE MYELOMA
     Route: 065
     Dates: start: 20100609
  6. OMEPRAZOLE [Concomitant]
     Route: 065
  7. REVLIMID [Suspect]
     Indication: MULTIPLE MYELOMA
     Route: 048
     Dates: start: 20100609, end: 20100617
  8. DEXAMETHASONE [Concomitant]
     Indication: MULTIPLE MYELOMA
     Route: 065
     Dates: start: 20100609
  9. DILTIAZEM [Concomitant]
     Route: 065
  10. PHOSLO [Concomitant]
     Route: 065

REACTIONS (3)
  - RENAL IMPAIRMENT [None]
  - DEATH [None]
  - DYSPNOEA [None]
